FAERS Safety Report 19716738 (Version 1)
Quarter: 2021Q3

REPORT INFORMATION
  Report Type: Spontaneous
  Country: US (occurrence: US)
  Receive Date: 20210819
  Receipt Date: 20210819
  Transmission Date: 20211014
  Serious: No
  Sender: FDA-Public Use
  Company Number: US-SA-2021SA273243

PATIENT
  Sex: Male

DRUGS (2)
  1. DUPIXENT [Suspect]
     Active Substance: DUPILUMAB
     Indication: DERMATITIS ALLERGIC
     Dosage: UNK UNK, QOW
     Route: 058
  2. RESCUE [Concomitant]
     Indication: ASTHMA
     Dosage: UNK, QD

REACTIONS (2)
  - Product use in unapproved indication [Unknown]
  - Weight increased [Unknown]
